FAERS Safety Report 4277227-5 (Version None)
Quarter: 2004Q1

REPORT INFORMATION
  Report Type: 
  Country: None (occurrence: None)
  Receive Date: 20040120
  Receipt Date: 20040109
  Transmission Date: 20041129
  Serious: Yes (Hospitalization)
  Sender: FDA-Public Use
  Company Number: JP-JNJFOC-20040101593

PATIENT
  Age: 81 Year
  Sex: Female

DRUGS (3)
  1. OFLOXACIN [Suspect]
     Dosage: 400 MG, 1 IN 1 DAY, INTRAVENOUS
     Route: 042
     Dates: start: 20031019, end: 20031026
  2. CLAMOXYL (AMOXICILLIN TRIHYDRAE) [Suspect]
     Dates: start: 20031019, end: 20031026
  3. COUMADIN [Suspect]
     Route: 048
     Dates: start: 20031015, end: 20031019

REACTIONS (3)
  - BREAST NECROSIS [None]
  - HAEMATOMA [None]
  - INTERNATIONAL NORMALISED RATIO INCREASED [None]
